FAERS Safety Report 15595996 (Version 2)
Quarter: 2018Q4

REPORT INFORMATION
  Report Type: Spontaneous
  Country: FI (occurrence: FI)
  Receive Date: 20181107
  Receipt Date: 20181114
  Transmission Date: 20190205
  Serious: Yes (Hospitalization, Other)
  Sender: FDA-Public Use
  Company Number: FI-ACCORD-090947

PATIENT
  Age: 17 Year

DRUGS (5)
  1. RISPERDAL [Suspect]
     Active Substance: RISPERIDONE
     Indication: PRODUCT USED FOR UNKNOWN INDICATION
     Route: 065
     Dates: start: 200801
  2. CICLOSPORIN [Concomitant]
     Active Substance: CYCLOSPORINE
     Indication: PRODUCT USED FOR UNKNOWN INDICATION
     Dates: start: 201105, end: 2013
  3. METHOTREXATE. [Suspect]
     Active Substance: METHOTREXATE
     Indication: PRODUCT USED FOR UNKNOWN INDICATION
     Dosage: 10-12.5 MG/WEEK,10 MG APR 2008,10MG APR-2007,ORAL
     Route: 030
     Dates: start: 200903
  4. ETANERCEPT [Suspect]
     Active Substance: ETANERCEPT
     Indication: PRODUCT USED FOR UNKNOWN INDICATION
     Dosage: MAR-2005 TO 2006,25MG 2006 TO MAR-2007,1999
     Route: 058
     Dates: start: 200703, end: 200706
  5. HUMIRA [Suspect]
     Active Substance: ADALIMUMAB
     Indication: PRODUCT USED FOR UNKNOWN INDICATION
     Dosage: 40 MG JUN-2007,2 WEEKS
     Route: 058
     Dates: start: 201001, end: 2017

REACTIONS (19)
  - Gambling disorder [Unknown]
  - Intraocular pressure increased [Unknown]
  - Weight increased [Recovered/Resolved]
  - Anterior chamber cell [Unknown]
  - H1N1 influenza [Unknown]
  - Iritis [Not Recovered/Not Resolved]
  - Tendonitis [Unknown]
  - Lethargy [Unknown]
  - Cataract [Unknown]
  - Alanine aminotransferase abnormal [Recovered/Resolved]
  - Ileal ulcer [Unknown]
  - Fatigue [Unknown]
  - Influenza [Recovered/Resolved]
  - Psychotic disorder [Unknown]
  - Mental disorder [Unknown]
  - Upper respiratory tract infection [Unknown]
  - Infection [Unknown]
  - Arthritis [Recovered/Resolved]
  - Tonsillitis [Unknown]

NARRATIVE: CASE EVENT DATE: 2007
